FAERS Safety Report 5118621-X (Version None)
Quarter: 2006Q4

REPORT INFORMATION
  Report Type: 
  Country: None (occurrence: None)
  Receive Date: 20061002
  Receipt Date: 20060807
  Transmission Date: 20070319
  Serious: Yes (Hospitalization)
  Sender: FDA-Public Use
  Company Number: J200602815

PATIENT
  Age: 59 Year
  Sex: Male

DRUGS (6)
  1. SAWACILLIN [Suspect]
     Dosage: 250MG THREE TIMES PER DAY
     Route: 048
     Dates: start: 20060614, end: 20060617
  2. CALONAL [Suspect]
     Dosage: 400MG AS REQUIRED
     Route: 048
     Dates: start: 20060614, end: 20060617
  3. CHINESE HERBAL MEDICINE [Concomitant]
     Route: 048
     Dates: start: 20060614, end: 20060617
  4. COUGH MEDICINE [Concomitant]
     Route: 048
     Dates: start: 20060614, end: 20060617
  5. TRANEXAMIC ACID [Concomitant]
     Dosage: 250MG THREE TIMES PER DAY
     Route: 048
     Dates: start: 20060614, end: 20060617
  6. TRANSAMIN [Concomitant]
     Dosage: 250MG THREE TIMES PER DAY
     Route: 048
     Dates: start: 20060614, end: 20060617

REACTIONS (6)
  - DRUG ERUPTION [None]
  - DRUG HYPERSENSITIVITY [None]
  - INTERSTITIAL LUNG DISEASE [None]
  - PNEUMONIA [None]
  - PYREXIA [None]
  - RASH [None]
